FAERS Safety Report 11389469 (Version 3)
Quarter: 2015Q3

REPORT INFORMATION
  Report Type: Spontaneous
  Country: TW (occurrence: TW)
  Receive Date: 20150817
  Receipt Date: 20150929
  Transmission Date: 20151125
  Serious: Yes (Hospitalization, Other)
  Sender: FDA-Public Use
  Company Number: TW-BAUSCH-BL-2015-019406

PATIENT
  Age: 52 Year
  Sex: Male

DRUGS (4)
  1. FLUOROURACIL. [Suspect]
     Active Substance: FLUOROURACIL
     Dosage: 1000 MILLIGRAM(S)/SQUARE METER;WEEKLY
     Route: 065
     Dates: start: 2014
  2. CISPLATIN. [Suspect]
     Active Substance: CISPLATIN
     Dosage: 70 MILLIGRAM(S)/SQUARE METER
     Route: 065
     Dates: start: 2014
  3. CISPLATIN. [Suspect]
     Active Substance: CISPLATIN
     Indication: OESOPHAGEAL SQUAMOUS CELL CARCINOMA STAGE III
     Dosage: 30 MILLIGRAM(S)/SQUARE METER;WEEKLY
     Route: 065
     Dates: start: 201402, end: 201403
  4. FLUOROURACIL. [Suspect]
     Active Substance: FLUOROURACIL
     Indication: OESOPHAGEAL SQUAMOUS CELL CARCINOMA STAGE III
     Dosage: 500 MILLIGRAM(S)/SQUARE METER;WEEKLY
     Route: 065
     Dates: start: 201402, end: 201403

REACTIONS (2)
  - Aorto-oesophageal fistula [Recovering/Resolving]
  - Cardiac pseudoaneurysm [Recovered/Resolved]

NARRATIVE: CASE EVENT DATE: 20140428
